FAERS Safety Report 10578427 (Version 2)
Quarter: 2014Q4

REPORT INFORMATION
  Report Type: Spontaneous
  Country: GB (occurrence: GB)
  Receive Date: 20141112
  Receipt Date: 20141201
  Transmission Date: 20150529
  Serious: Yes (Disabling)
  Sender: FDA-Public Use
  Company Number: GB-009507513-1411GBR005007

PATIENT
  Age: 65 Year
  Sex: Male

DRUGS (2)
  1. SIMVASTATIN. [Suspect]
     Active Substance: SIMVASTATIN
     Dosage: UNK
  2. SIMVASTATIN. [Suspect]
     Active Substance: SIMVASTATIN
     Indication: BLOOD CHOLESTEROL INCREASED
     Dosage: UNK
     Route: 048

REACTIONS (5)
  - Balance disorder [Unknown]
  - Myalgia [Unknown]
  - Tenderness [Unknown]
  - Insomnia [Unknown]
  - Asthenia [Unknown]
